FAERS Safety Report 8308312-6 (Version None)
Quarter: 2012Q2

REPORT INFORMATION
  Report Type: 
  Country: None (occurrence: None)
  Receive Date: 20120419
  Receipt Date: 20120409
  Transmission Date: 20120825
  Serious: Yes (Hospitalization, Other)
  Sender: FDA-Public Use
  Company Number: GGEL20120400475

PATIENT

DRUGS (1)
  1. LAMOTRIGINE [Suspect]
     Indication: INTENTIONAL OVERDOSE

REACTIONS (11)
  - RESPIRATORY DEPRESSION [None]
  - VENTRICULAR ARRHYTHMIA [None]
  - SHOCK [None]
  - RHABDOMYOLYSIS [None]
  - SUICIDE ATTEMPT [None]
  - COMA [None]
  - HYPOKALAEMIA [None]
  - TOXICITY TO VARIOUS AGENTS [None]
  - EPILEPSY [None]
  - ATRIOVENTRICULAR BLOCK [None]
  - VENTRICULAR FIBRILLATION [None]
